FAERS Safety Report 16062128 (Version 1)
Quarter: 2020Q3

REPORT INFORMATION
  Report Type: Spontaneous
  Country: US (occurrence: US)
  Receive Date: 20190312
  Receipt Date: 20190312
  Transmission Date: 20201104
  Serious: Yes (Other)
  Sender: FDA-Public Use
  Company Number: US-MICRO LABS LIMITED-ML2019-00519

PATIENT
  Age: 75 Year
  Sex: Male

DRUGS (3)
  1. HYDRALAZINE [Suspect]
     Active Substance: HYDRALAZINE HYDROCHLORIDE
  2. TREMELIMUMAB. [Suspect]
     Active Substance: TREMELIMUMAB
     Indication: METASTATIC RENAL CELL CARCINOMA
     Dosage: 2 DOSES (6 WEEKS)
  3. AMOXICILLIN/CLAVULANIC ACID [Suspect]
     Active Substance: AMOXICILLIN\CLAVULANIC ACID
     Dosage: 500 MG DAILY FOR 5 DAYS

REACTIONS (4)
  - Glomerulonephritis [Recovering/Resolving]
  - Pneumonitis [Recovered/Resolved]
  - Dermatitis [Recovered/Resolved]
  - Tubulointerstitial nephritis [Recovering/Resolving]
